FAERS Safety Report 11503442 (Version 5)
Quarter: 2018Q4

REPORT INFORMATION
  Report Type: Spontaneous
  Country: US (occurrence: US)
  Receive Date: 20150914
  Receipt Date: 20181029
  Transmission Date: 20190204
  Serious: Yes (Other)
  Sender: FDA-Public Use
  Company Number: US-ASTELLAS-2015US025076

PATIENT
  Age: 75 Year
  Sex: Male

DRUGS (10)
  1. XTANDI [Suspect]
     Active Substance: ENZALUTAMIDE
     Indication: METASTASES TO BONE
     Dosage: UNK UNK, UNKNOWN FREQ.
     Route: 048
  2. KYPROLIS [Suspect]
     Active Substance: CARFILZOMIB
     Indication: PRODUCT USED FOR UNKNOWN INDICATION
  3. XTANDI [Suspect]
     Active Substance: ENZALUTAMIDE
     Dosage: 40 MG (1 DF), TWICE DAILY
     Route: 065
     Dates: start: 20150526
  4. XTANDI [Suspect]
     Active Substance: ENZALUTAMIDE
     Route: 048
     Dates: start: 20170120
  5. XGEVA [Suspect]
     Active Substance: DENOSUMAB
     Indication: PRODUCT USED FOR UNKNOWN INDICATION
  6. XTANDI [Suspect]
     Active Substance: ENZALUTAMIDE
     Indication: PROSTATE CANCER
     Route: 048
  7. XTANDI [Suspect]
     Active Substance: ENZALUTAMIDE
     Dosage: 80 MG (2 DF), TWICE DAILY
     Route: 065
     Dates: start: 201507
  8. XTANDI [Suspect]
     Active Substance: ENZALUTAMIDE
     Route: 065
  9. XTANDI [Suspect]
     Active Substance: ENZALUTAMIDE
     Route: 048
  10. XTANDI [Suspect]
     Active Substance: ENZALUTAMIDE
     Dosage: 40 MG, OTHER (EVERY THREE DAYS)
     Route: 048

REACTIONS (15)
  - Gait disturbance [Unknown]
  - Product dose omission [Unknown]
  - Dizziness [Recovered/Resolved]
  - Fatigue [Unknown]
  - Loss of personal independence in daily activities [Unknown]
  - Drug intolerance [Recovered/Resolved]
  - Inappropriate schedule of product administration [Unknown]
  - Blood cholesterol increased [Unknown]
  - Fatigue [Recovered/Resolved]
  - Dysstasia [Unknown]
  - Dizziness [Unknown]
  - Fatigue [Unknown]
  - Balance disorder [Recovered/Resolved]
  - Vision blurred [Recovered/Resolved]
  - Constipation [Unknown]

NARRATIVE: CASE EVENT DATE: 201503
